FAERS Safety Report 23415394 (Version 2)
Quarter: 2024Q1

REPORT INFORMATION
  Report Type: Report from Study
  Country: HN (occurrence: HN)
  Receive Date: 20240118
  Receipt Date: 20240131
  Transmission Date: 20240409
  Serious: Yes (Hospitalization, Disabling, Other)
  Sender: FDA-Public Use
  Company Number: HN-002147023-NVSC2024HN009792

PATIENT
  Age: 78 Year
  Sex: Female

DRUGS (2)
  1. DIOVAN [Suspect]
     Active Substance: VALSARTAN
     Indication: Hypertension
     Dosage: 160 MG, BID (ABOUT 3 OR 4 YEARS AGO)
     Route: 048
     Dates: start: 202310, end: 20240105
  2. DIOVAN [Suspect]
     Active Substance: VALSARTAN
     Dosage: 320 MG, BID (2 WEEKS AGO)
     Route: 048
     Dates: start: 20240105

REACTIONS (5)
  - Hypertensive crisis [Recovering/Resolving]
  - Cerebrovascular accident [Recovering/Resolving]
  - Vascular rupture [Recovering/Resolving]
  - Speech disorder [Recovering/Resolving]
  - Overdose [Unknown]

NARRATIVE: CASE EVENT DATE: 20231215
